FAERS Safety Report 10897739 (Version 1)
Quarter: 2015Q1

REPORT INFORMATION
  Report Type: Spontaneous
  Country: GB (occurrence: GB)
  Receive Date: 20150309
  Receipt Date: 20150309
  Transmission Date: 20150721
  Serious: Yes (Life-Threatening)
  Sender: FDA-Public Use
  Company Number: GB-TEVA-545266ACC

PATIENT
  Age: 30 Year
  Sex: Female

DRUGS (3)
  1. ACTAVIS UK CO-CODAMOL [Concomitant]
     Dosage: 1G FOUR TIMES DAILY AS NECESSARY, 30MG/500MG
     Route: 048
  2. PROCHLORPERAZINE. [Concomitant]
     Active Substance: PROCHLORPERAZINE
     Dosage: 6 MILLIGRAM DAILY; BUCCAL TABLET; DAILY DOSE: 6 MILLIGRAM
     Route: 002
  3. ONDANSETRON [Suspect]
     Active Substance: ONDANSETRON
     Indication: NAUSEA
     Route: 048

REACTIONS (3)
  - Wheezing [Recovered/Resolved]
  - Feeling hot [Recovered/Resolved]
  - Rash erythematous [Recovered/Resolved]

NARRATIVE: CASE EVENT DATE: 20150206
